FAERS Safety Report 4324629-4 (Version None)
Quarter: 2004Q1

REPORT INFORMATION
  Report Type: 
  Country: None (occurrence: None)
  Receive Date: 20040323
  Receipt Date: 20040318
  Transmission Date: 20041129
  Serious: Yes (Hospitalization, Other)
  Sender: FDA-Public Use
  Company Number: FRWYE553503FEB04

PATIENT
  Age: 35 Year
  Sex: Female

DRUGS (5)
  1. EFFEXOR [Suspect]
     Indication: DEPRESSION
     Dosage: 150 MG 1X PER 1 DAY, ORAL; ORAL
     Route: 048
     Dates: start: 20040101, end: 20040101
  2. EFFEXOR [Suspect]
     Indication: DEPRESSION
     Dosage: 150 MG 1X PER 1 DAY, ORAL; ORAL
     Route: 048
     Dates: start: 20040101, end: 20040101
  3. MODAFINIL [Suspect]
     Indication: NARCOLEPSY
     Dosage: 100 MG, 2X PER 1 DAY, ORAL
     Route: 048
     Dates: start: 20040101, end: 20040101
  4. MODAFINIL [Suspect]
     Indication: NARCOLEPSY
     Dosage: 100 MG, 2X PER 1 DAY, ORAL
     Route: 048
     Dates: end: 20040101
  5. MODAFINIL [Suspect]
     Indication: NARCOLEPSY
     Dosage: 100 MG, 2X PER 1 DAY, ORAL
     Route: 048
     Dates: start: 20040101

REACTIONS (2)
  - DRUG INTERACTION [None]
  - MANIA [None]
